FAERS Safety Report 13525447 (Version 1)
Quarter: 2017Q2

REPORT INFORMATION
  Report Type: Spontaneous
  Country: US (occurrence: US)
  Receive Date: 20170508
  Receipt Date: 20170508
  Transmission Date: 20170830
  Serious: No
  Sender: FDA-Public Use
  Company Number: US-ROCHE-1102475

PATIENT
  Sex: Male

DRUGS (5)
  1. TARCEVA [Suspect]
     Active Substance: ERLOTINIB HYDROCHLORIDE
     Indication: RENAL CANCER
     Route: 065
     Dates: start: 20050331
  2. GLEEVEC [Concomitant]
     Active Substance: IMATINIB MESYLATE
     Route: 065
     Dates: start: 200410
  3. IRESSA [Concomitant]
     Active Substance: GEFITINIB
     Route: 065
     Dates: start: 200410, end: 20050331
  4. AVASTIN [Suspect]
     Active Substance: BEVACIZUMAB
     Indication: RENAL CANCER
     Route: 065
     Dates: start: 20040610
  5. THALOMID [Concomitant]
     Active Substance: THALIDOMIDE
     Route: 065
     Dates: start: 20040610

REACTIONS (9)
  - Asthenia [Unknown]
  - Nausea [Unknown]
  - Night sweats [Recovering/Resolving]
  - Headache [Unknown]
  - Weight decreased [Unknown]
  - Fatigue [Unknown]
  - Rash [Unknown]
  - Vomiting [Unknown]
  - Diarrhoea [Unknown]
